FAERS Safety Report 22643198 (Version 1)
Quarter: 2023Q2

REPORT INFORMATION
  Report Type: Spontaneous
  Country: US (occurrence: US)
  Receive Date: 20230627
  Receipt Date: 20230627
  Transmission Date: 20230722
  Serious: No
  Sender: FDA-Public Use
  Company Number: US-ELI_LILLY_AND_COMPANY-US202306014350

PATIENT
  Age: 40 Year
  Sex: Male

DRUGS (2)
  1. TRULICITY [Suspect]
     Active Substance: DULAGLUTIDE
     Indication: Weight decreased
     Dosage: 0.75 MG, UNKNOWN
     Route: 065
     Dates: start: 202301
  2. TRULICITY [Suspect]
     Active Substance: DULAGLUTIDE
     Dosage: 0.75 MG, UNKNOWN
     Route: 065
     Dates: start: 202301

REACTIONS (4)
  - Injection site pain [Recovered/Resolved]
  - Abdominal pain [Recovering/Resolving]
  - Off label use [Unknown]
  - Product storage error [Recovering/Resolving]

NARRATIVE: CASE EVENT DATE: 20230101
